FAERS Safety Report 6541345-9 (Version None)
Quarter: 2010Q1

REPORT INFORMATION
  Report Type: 
  Country: None (occurrence: None)
  Receive Date: 20100118
  Receipt Date: 20100105
  Transmission Date: 20100710
  Serious: Yes (Other)
  Sender: FDA-Public Use
  Company Number: PHEH2008US07366

PATIENT
  Sex: Male

DRUGS (41)
  1. ZOMETA [Suspect]
     Indication: OSTEOLYSIS
     Dosage: 4 MG, MONTHLY
  2. ZOMETA [Suspect]
     Dosage: 4 MG, EVERY THREE MONTHS
  3. RADIATION THERAPY [Concomitant]
  4. PERCOCET [Concomitant]
     Indication: PAIN
  5. THALIDOMIDE [Concomitant]
     Dosage: UNK
     Dates: end: 20040101
  6. CHEMOTHERAPEUTICS NOS [Concomitant]
  7. OXYCODONE HCL [Concomitant]
     Indication: PAIN
  8. OXYCONTIN [Concomitant]
     Indication: PAIN
  9. NAPROSYN [Concomitant]
     Indication: PAIN
  10. FLONASE [Concomitant]
  11. OXYCODONE HCL AND ACETAMINOPHEN [Concomitant]
     Indication: PAIN
     Dosage: 5/325 MG, Q 4 WEEKS
  12. LOPRESSOR [Concomitant]
     Dosage: UNK, 2 X DAILY
  13. SUBOXONE [Concomitant]
     Dosage: 4 MG / 3 X DAILY
  14. LISINOPRIL [Concomitant]
     Dosage: 10 MG /  ONCE DAILY
  15. SIMVASTATIN [Concomitant]
     Dosage: UNK, ONCE DAILY
  16. MORPHINE [Concomitant]
     Dosage: 4 MG
     Dates: start: 20080509
  17. LEVAQUIN [Concomitant]
     Dosage: 500 MG
     Route: 048
     Dates: start: 20080509
  18. VICODIN [Concomitant]
     Dosage: 5 MG
     Route: 048
     Dates: start: 20080509, end: 20080509
  19. DIPHTHERIA AND TETANUS VACCINE [Concomitant]
     Dates: start: 20070917, end: 20070917
  20. IBUPROFEN [Concomitant]
     Dosage: 600 MG
     Route: 048
     Dates: start: 20070917
  21. AUGMENTIN '125' [Concomitant]
     Dosage: 875 MG
     Dates: start: 20070917
  22. STEROIDS NOS [Concomitant]
     Dosage: UNK
     Route: 008
  23. HYDROCODONE BITARTRATE AND ACETAMINOPHEN [Concomitant]
     Dosage: 500 MG
  24. AMOXICILLIN [Concomitant]
     Dosage: 500 MG
  25. DOXYCYCLINE HYCLATE [Concomitant]
     Dosage: 100 MG
  26. METOPROLOL [Concomitant]
     Dosage: 100 MG
  27. OXYCODONE HCL AND ACETAMINOPHEN [Concomitant]
     Dosage: 5/325 MG
  28. BUPROPION [Concomitant]
     Dosage: 300 MG
  29. ALDARA [Concomitant]
     Dosage: UNK
  30. METHYLPREDNISOLONE [Concomitant]
     Dosage: 4 MG
  31. CHANTIX [Concomitant]
     Dosage: UNK
     Dates: start: 20071101
  32. CLINDAMYCIN [Concomitant]
     Dosage: 150 MG
  33. CHLORHEXIDINE GLUCONATE [Concomitant]
     Dosage: UNK
  34. LORAZEPAM [Concomitant]
     Dosage: 0.5 MG
  35. FLUNISOLIDE [Concomitant]
     Dosage: UNK
  36. FLUOXETINE [Concomitant]
     Dosage: 20 MG
  37. CYTOMEL [Concomitant]
     Dosage: 25 MCG
  38. CYMBALTA [Concomitant]
     Dosage: 60 MG
  39. TRIAMCINOLONE [Concomitant]
     Dosage: UNK
  40. ALPRAZOLAM [Concomitant]
     Dosage: 0.5 MG
  41. SUBOXONE [Concomitant]

REACTIONS (31)
  - ABDOMINAL PAIN [None]
  - ANIMAL BITE [None]
  - ANXIETY [None]
  - BLOOD CHOLESTEROL INCREASED [None]
  - BONE LESION [None]
  - CHEST PAIN [None]
  - CONSTIPATION [None]
  - DECREASED INTEREST [None]
  - EXCORIATION [None]
  - FATIGUE [None]
  - GENERAL PHYSICAL HEALTH DETERIORATION [None]
  - GROIN PAIN [None]
  - HEPATIC CYST [None]
  - HYPOAESTHESIA [None]
  - INFLUENZA LIKE ILLNESS [None]
  - INTERVERTEBRAL DISC DISORDER [None]
  - LUMBAR SPINAL STENOSIS [None]
  - LUNG NEOPLASM MALIGNANT [None]
  - MALAISE [None]
  - MEDIASTINAL DISORDER [None]
  - METASTATIC PAIN [None]
  - MULTIPLE MYELOMA [None]
  - OSTEONECROSIS [None]
  - PAIN [None]
  - PELVIC FRACTURE [None]
  - PLASMACYTOMA [None]
  - PNEUMONIA [None]
  - PULMONARY MASS [None]
  - SKIN LACERATION [None]
  - SPINAL OSTEOARTHRITIS [None]
  - TOOTH EXTRACTION [None]
